FAERS Safety Report 11734376 (Version 1)
Quarter: 2015Q4

REPORT INFORMATION
  Report Type: Spontaneous
  Country: US (occurrence: US)
  Receive Date: 20151113
  Receipt Date: 20151113
  Transmission Date: 20160304
  Serious: No
  Sender: FDA-Public Use
  Company Number: US-BIOGENIDEC-2015BI150244

PATIENT
  Age: 56 Year
  Sex: Male

DRUGS (4)
  1. BISACODYL. [Concomitant]
     Active Substance: BISACODYL
  2. MAGNESIUM [Concomitant]
     Active Substance: MAGNESIUM
  3. CITROMA [Concomitant]
     Active Substance: MAGNESIUM CITRATE
  4. TECFIDERA [Suspect]
     Active Substance: DIMETHYL FUMARATE
     Indication: MULTIPLE SCLEROSIS
     Route: 048

REACTIONS (5)
  - Calculus ureteric [Not Recovered/Not Resolved]
  - Abdominal pain [Not Recovered/Not Resolved]
  - Constipation [Not Recovered/Not Resolved]
  - Depression [Not Recovered/Not Resolved]
  - Anxiety [Not Recovered/Not Resolved]
